FAERS Safety Report 13961880 (Version 1)
Quarter: 2017Q3

REPORT INFORMATION
  Report Type: Spontaneous
  Country: DE (occurrence: DE)
  Receive Date: 20170912
  Receipt Date: 20170912
  Transmission Date: 20171128
  Serious: Yes (Death, Other)
  Sender: FDA-Public Use
  Company Number: PHHY2017DE133195

PATIENT
  Age: 51 Year
  Sex: Male

DRUGS (13)
  1. SANDOSTATIN LAR DEPOT [Suspect]
     Active Substance: OCTREOTIDE ACETATE
     Dosage: 30 MG, UNTIL CYCLE 20
     Route: 065
     Dates: start: 200911, end: 201007
  2. SANDOSTATIN LAR DEPOT [Suspect]
     Active Substance: OCTREOTIDE ACETATE
     Dosage: 40 MG, UNTIL CYCLE 27
     Route: 065
     Dates: start: 201008, end: 201101
  3. SANDOSTATIN LAR DEPOT [Suspect]
     Active Substance: OCTREOTIDE ACETATE
     Dosage: UNK
     Route: 065
     Dates: start: 201207, end: 201301
  4. SANDOSTATIN LAR DEPOT [Suspect]
     Active Substance: OCTREOTIDE ACETATE
     Dosage: 30 MG, UNK
     Route: 065
     Dates: start: 201310, end: 201407
  5. CARBOPLATIN + ETOPOSIDE [Concomitant]
     Indication: PRODUCT USED FOR UNKNOWN INDICATION
     Dosage: UNK, 7 CYCLES
     Route: 065
     Dates: start: 201508, end: 201602
  6. EVEROLIMUS [Suspect]
     Active Substance: EVEROLIMUS
     Indication: PANCREATIC NEUROENDOCRINE TUMOUR
     Dosage: 10 MG, QD
     Route: 065
     Dates: start: 201207, end: 201301
  7. SUTENT [Concomitant]
     Active Substance: SUNITINIB MALATE
     Dosage: 37.5 UNK, QD
     Route: 065
     Dates: start: 201302
  8. SUTENT [Concomitant]
     Active Substance: SUNITINIB MALATE
     Dosage: 25 MG, UNK
     Route: 065
     Dates: start: 201305
  9. SOMATULINE [Concomitant]
     Active Substance: LANREOTIDE ACETATE
     Indication: PRODUCT USED FOR UNKNOWN INDICATION
     Dosage: 90-120 MG, UNK
     Route: 065
     Dates: start: 201503, end: 201506
  10. SANDOSTATIN LAR DEPOT [Suspect]
     Active Substance: OCTREOTIDE ACETATE
     Indication: PANCREATIC NEUROENDOCRINE TUMOUR
     Dosage: 20 MG, UNK
     Route: 065
     Dates: start: 200812, end: 200903
  11. SANDOSTATIN LAR DEPOT [Suspect]
     Active Substance: OCTREOTIDE ACETATE
     Dosage: 30 MG, UNK
     Route: 065
     Dates: start: 201304
  12. SANDOSTATIN LAR DEPOT [Suspect]
     Active Substance: OCTREOTIDE ACETATE
     Dosage: 30 MG, 4 CYCLES
     Route: 065
     Dates: start: 200904, end: 200907
  13. SANDOSTATIN LAR DEPOT [Suspect]
     Active Substance: OCTREOTIDE ACETATE
     Dosage: 30 MG, UNTIL CYCLE 40
     Route: 065
     Dates: start: 201104, end: 201207

REACTIONS (11)
  - General physical health deterioration [Unknown]
  - Hepatic pain [Unknown]
  - Diarrhoea [Unknown]
  - Flushing [Unknown]
  - Haematotoxicity [Unknown]
  - Death [Fatal]
  - Infection [Unknown]
  - Fatigue [Unknown]
  - Inappropriate schedule of drug administration [Unknown]
  - Metastases to liver [Unknown]
  - Malignant neoplasm progression [Unknown]

NARRATIVE: CASE EVENT DATE: 2010
